FAERS Safety Report 14090987 (Version 1)
Quarter: 2017Q4

REPORT INFORMATION
  Report Type: Spontaneous
  Country: US (occurrence: US)
  Receive Date: 20171016
  Receipt Date: 20171016
  Transmission Date: 20180321
  Serious: No
  Sender: FDA-Public Use
  Company Number: US-SHIRE-US201719544

PATIENT
  Sex: Female

DRUGS (1)
  1. CUVITRU [Suspect]
     Active Substance: HUMAN IMMUNOGLOBULIN G
     Indication: PRIMARY IMMUNODEFICIENCY SYNDROME
     Dosage: UNK
     Route: 058
     Dates: start: 20170725

REACTIONS (7)
  - Headache [Unknown]
  - Chromaturia [Unknown]
  - Infusion site pain [Unknown]
  - Infusion site reaction [Unknown]
  - Myalgia [Unknown]
  - Infusion site erythema [Unknown]
  - Fatigue [Unknown]

NARRATIVE: CASE EVENT DATE: 20170729
